FAERS Safety Report 7756331-0 (Version None)
Quarter: 2011Q3

REPORT INFORMATION
  Report Type: 
  Country: None (occurrence: None)
  Receive Date: 20110916
  Receipt Date: 20110912
  Transmission Date: 20111222
  Serious: Yes (Hospitalization)
  Sender: FDA-Public Use
  Company Number: DE-SANOFI-AVENTIS-2011SA059330

PATIENT
  Age: 80 Year
  Sex: Male

DRUGS (1)
  1. JEVTANA KIT [Suspect]
     Indication: PROSTATE CANCER
     Route: 051
     Dates: start: 20110824, end: 20110824

REACTIONS (1)
  - EXTRAPYRAMIDAL DISORDER [None]
